FAERS Safety Report 10009391 (Version 2)
Quarter: 2014Q1

REPORT INFORMATION
  Report Type: Spontaneous
  Country: US (occurrence: US)
  Receive Date: 20140313
  Receipt Date: 20140313
  Transmission Date: 20141002
  Serious: No
  Sender: FDA-Public Use
  Company Number: US-INCYTE CORPORATION-2012IN001353

PATIENT
  Age: 71 Year
  Sex: Female
  Weight: 53.52 kg

DRUGS (9)
  1. JAKAFI [Suspect]
     Indication: MYELOFIBROSIS
     Dosage: 20 MG, BID
     Route: 048
     Dates: start: 20120403
  2. METOPROLOL [Concomitant]
  3. LISINOPRIL [Concomitant]
  4. HYDROCHLOROTHIAZIDE [Concomitant]
  5. AMLODIPINE [Concomitant]
  6. SYMBICORT [Concomitant]
  7. OSTEO BI-FLEX [Concomitant]
  8. CALCIUM CITRATE [Concomitant]
  9. MULTIVITAMINS [Concomitant]

REACTIONS (1)
  - Blister [Recovered/Resolved]
